FAERS Safety Report 18682958 (Version 2)
Quarter: 2021Q1

REPORT INFORMATION
  Report Type: Other
  Country: SE (occurrence: SE)
  Receive Date: 20201230
  Receipt Date: 20210104
  Transmission Date: 20210419
  Serious: Yes (Other)
  Sender: FDA-Public Use
  Company Number: SE-ASTELLAS-2020US045996

PATIENT
  Age: 18 Year
  Sex: Female

DRUGS (4)
  1. KALCIPOS?D [Concomitant]
     Active Substance: CALCIUM CARBONATE\CHOLECALCIFEROL
     Indication: PRODUCT USED FOR UNKNOWN INDICATION
     Dosage: UNK UNK, UNKNOWN FREQ.
     Route: 065
     Dates: start: 2018
  2. PROGRAF [Suspect]
     Active Substance: TACROLIMUS
     Indication: IMMUNOSUPPRESSANT DRUG THERAPY
     Dosage: 3 MG, ONCE DAILY (1.5MGX2)
     Route: 048
     Dates: start: 2018
  3. PROGRAF [Interacting]
     Active Substance: TACROLIMUS
     Dosage: UNK UNK, UNKNOWN FREQ.
     Route: 065
  4. AZALIA [Interacting]
     Active Substance: DESOGESTREL
     Indication: ORAL CONTRACEPTION
     Route: 048
     Dates: start: 202005

REACTIONS (3)
  - Immunosuppressant drug level increased [Recovered/Resolved]
  - Drug interaction [Recovered/Resolved]
  - Inappropriate schedule of product administration [Unknown]

NARRATIVE: CASE EVENT DATE: 20200820
